FAERS Safety Report 13468418 (Version 1)
Quarter: 2017Q2

REPORT INFORMATION
  Report Type: Spontaneous
  Country: GB (occurrence: GB)
  Receive Date: 20170421
  Receipt Date: 20170421
  Transmission Date: 20170830
  Serious: Yes (Hospitalization, Other)
  Sender: FDA-Public Use
  Company Number: GB-B. BRAUN MEDICAL INC.-1065645

PATIENT
  Age: 68 Year
  Sex: Male
  Weight: 61 kg

DRUGS (19)
  1. FOSTAIR [Concomitant]
     Active Substance: BECLOMETHASONE\FORMOTEROL
  2. MEROPENEM. [Concomitant]
     Active Substance: MEROPENEM
  3. LACTULOSE. [Concomitant]
     Active Substance: LACTULOSE
  4. LEVOFLOXACIN. [Concomitant]
     Active Substance: LEVOFLOXACIN
  5. SALBUTAMOL [Concomitant]
     Active Substance: ALBUTEROL
  6. TIOTROPIUM [Concomitant]
     Active Substance: TIOTROPIUM
  7. METRONIDAZOLE. [Suspect]
     Active Substance: METRONIDAZOLE
     Indication: LUNG ABSCESS
     Route: 042
     Dates: start: 20170328, end: 20170330
  8. AZITHROMYCIN ANHYDROUS. [Concomitant]
     Active Substance: AZITHROMYCIN ANHYDROUS
  9. RANITIDINE. [Concomitant]
     Active Substance: RANITIDINE
  10. MOMETASONE FUROATE. [Concomitant]
     Active Substance: MOMETASONE FUROATE
  11. PARACETAMOL [Concomitant]
     Active Substance: ACETAMINOPHEN
  12. TRIMETHOPRIM. [Concomitant]
     Active Substance: TRIMETHOPRIM
  13. UNIPHYLLIN CONTINUS [Concomitant]
     Active Substance: THEOPHYLLINE ANHYDROUS
  14. DOXYCYCLINE. [Concomitant]
     Active Substance: DOXYCYCLINE
  15. PRAVASTATIN SODIUM. [Concomitant]
     Active Substance: PRAVASTATIN SODIUM
  16. TAZOCIN [Concomitant]
     Active Substance: PIPERACILLIN SODIUM\TAZOBACTAM SODIUM
  17. CARBOCYSTEINE [Concomitant]
     Active Substance: CARBOCYSTEINE
  18. CLARITHROMYCIN. [Concomitant]
     Active Substance: CLARITHROMYCIN
  19. ERTAPENEM [Concomitant]
     Active Substance: ERTAPENEM

REACTIONS (6)
  - Hallucination [Recovering/Resolving]
  - Peripheral swelling [Recovering/Resolving]
  - Angioedema [Recovering/Resolving]
  - Confusional state [Recovering/Resolving]
  - Delirium [Recovering/Resolving]
  - Dysphagia [Recovering/Resolving]

NARRATIVE: CASE EVENT DATE: 20170328
